FAERS Safety Report 9663589 (Version 1)
Quarter: 2013Q4

REPORT INFORMATION
  Report Type: Spontaneous
  Country: US (occurrence: US)
  Receive Date: 20131101
  Receipt Date: 20131101
  Transmission Date: 20140711
  Serious: No
  Sender: FDA-Public Use
  Company Number: US-PFIZER INC-2013311530

PATIENT
  Age: 52 Year
  Sex: Male

DRUGS (7)
  1. XELJANZ [Suspect]
     Indication: RHEUMATOID ARTHRITIS
     Dosage: 5 MG, 2X/DAY
     Route: 048
  2. LOVASTATIN [Concomitant]
     Dosage: 10 MG
  3. PREDNISONE [Concomitant]
     Dosage: 1 MG
  4. SLO-NIACIN [Concomitant]
     Dosage: 250 MG CR (CONTROLLED RELEASE)
  5. ASPIRIN LOW DOSE [Concomitant]
     Dosage: 81 MG EC (ENTERIC COATED)
  6. VITAMIN D [Concomitant]
     Dosage: 5000 IU
  7. METFORMIN [Concomitant]
     Dosage: 850 MG

REACTIONS (4)
  - Abdominal discomfort [Unknown]
  - Diarrhoea [Unknown]
  - Abdominal pain [Unknown]
  - Drug ineffective [Unknown]
